FAERS Safety Report 6556400-7 (Version None)
Quarter: 2010Q1

REPORT INFORMATION
  Report Type: 
  Country: None (occurrence: None)
  Receive Date: 20100128
  Receipt Date: 20100126
  Transmission Date: 20100710
  Serious: Yes (Death)
  Sender: FDA-Public Use
  Company Number: A0839503A

PATIENT
  Age: 18 Year
  Sex: Female
  Weight: 57.2 kg

DRUGS (2)
  1. ZANAMIVIR [Suspect]
     Indication: H1N1 INFLUENZA
     Route: 042
     Dates: start: 20091125, end: 20091206
  2. INTUBATION [Concomitant]

REACTIONS (1)
  - HAEMORRHAGE [None]
